FAERS Safety Report 15013775 (Version 2)
Quarter: 2022Q1

REPORT INFORMATION
  Report Type: Report from Study
  Country: FR (occurrence: FR)
  Receive Date: 20180614
  Receipt Date: 20220130
  Transmission Date: 20220424
  Serious: Yes (Other)
  Sender: FDA-Public Use
  Company Number: FR-JAZZ-2018-FR-009078

PATIENT

DRUGS (2)
  1. DEFITELIO [Suspect]
     Active Substance: DEFIBROTIDE SODIUM
     Indication: Prophylaxis
     Dosage: 25 MG/KG, QD
     Dates: start: 20150223, end: 20150411
  2. DEFITELIO [Suspect]
     Active Substance: DEFIBROTIDE SODIUM
     Indication: Venoocclusive disease

REACTIONS (2)
  - Thrombotic microangiopathy [Unknown]
  - Off label use [Unknown]

NARRATIVE: CASE EVENT DATE: 20150402
